FAERS Safety Report 21803356 (Version 1)
Quarter: 2023Q1

REPORT INFORMATION
  Report Type: Report from Study
  Country: US (occurrence: US)
  Receive Date: 20230101
  Receipt Date: 20230101
  Transmission Date: 20230418
  Serious: No
  Sender: FDA-Public Use
  Company Number: US-ABBVIE-4254771

PATIENT
  Sex: Female

DRUGS (1)
  1. VENCLEXTA [Suspect]
     Active Substance: VENETOCLAX
     Indication: Chronic lymphocytic leukaemia
     Dosage: 0.33333333 DAYS?THE ONSET OF NOT FEELING WELL WAS IN 2022.
     Route: 048
     Dates: start: 20220314

REACTIONS (1)
  - Malaise [Unknown]
